FAERS Safety Report 16710174 (Version 3)
Quarter: 2019Q3

REPORT INFORMATION
  Report Type: Spontaneous
  Country: JP (occurrence: JP)
  Receive Date: 20190816
  Receipt Date: 20190919
  Transmission Date: 20191004
  Serious: Yes (Other)
  Sender: FDA-Public Use
  Company Number: JP-PFIZER INC-2019351983

PATIENT
  Age: 69 Year
  Sex: Male

DRUGS (1)
  1. MEROPENEM. [Suspect]
     Active Substance: MEROPENEM
     Indication: STREPTOCOCCAL INFECTION
     Dosage: UNK

REACTIONS (2)
  - Renal impairment [Unknown]
  - Respiratory failure [Unknown]
